FAERS Safety Report 15937041 (Version 2)
Quarter: 2019Q2

REPORT INFORMATION
  Report Type: Spontaneous
  Country: US (occurrence: US)
  Receive Date: 20190208
  Receipt Date: 20190412
  Transmission Date: 20190711
  Serious: Yes (Other)
  Sender: FDA-Public Use
  Company Number: US-ASTRAZENECA-2018SF33921

PATIENT
  Age: 535 Month
  Sex: Female

DRUGS (28)
  1. NEXIUM [Suspect]
     Active Substance: ESOMEPRAZOLE MAGNESIUM
     Indication: GASTRIC BYPASS
     Route: 048
     Dates: start: 201406, end: 201501
  2. NEXIUM [Suspect]
     Active Substance: ESOMEPRAZOLE MAGNESIUM
     Indication: GASTRIC BYPASS
     Route: 048
     Dates: start: 20140604
  3. PROTONIX [Suspect]
     Active Substance: PANTOPRAZOLE SODIUM
     Indication: GASTRIC BYPASS
     Route: 048
     Dates: start: 20120523
  4. PROTONIX [Suspect]
     Active Substance: PANTOPRAZOLE SODIUM
     Indication: GASTRIC BYPASS
     Route: 048
     Dates: start: 2007, end: 2016
  5. OXYCODONE [Concomitant]
     Active Substance: OXYCODONE
  6. TRAMADOL HYDROCHLORIDE. [Concomitant]
     Active Substance: TRAMADOL HYDROCHLORIDE
  7. NEXIUM 24HR [Suspect]
     Active Substance: ESOMEPRAZOLE MAGNESIUM
     Route: 048
     Dates: start: 201406, end: 201501
  8. TRAZODONE HYDROCHLORIDE. [Concomitant]
     Active Substance: TRAZODONE HYDROCHLORIDE
     Dates: start: 20170307
  9. HYDROCODONE BITARTRATE AND ACETAMINOPHEN [Concomitant]
     Active Substance: ACETAMINOPHEN\HYDROCODONE BITARTRATE
  10. NEXIUM [Suspect]
     Active Substance: ESOMEPRAZOLE MAGNESIUM
     Indication: GASTRIC BYPASS
     Route: 048
     Dates: start: 20140604, end: 20150120
  11. PROTONIX [Suspect]
     Active Substance: PANTOPRAZOLE SODIUM
     Indication: GASTRIC BYPASS
     Dosage: GENERIC
     Route: 048
     Dates: start: 2007, end: 2016
  12. FAMOTIDINE. [Concomitant]
     Active Substance: FAMOTIDINE
  13. PROTONIX [Suspect]
     Active Substance: PANTOPRAZOLE SODIUM
     Indication: GASTRIC BYPASS
     Route: 065
     Dates: start: 201406, end: 201501
  14. AMLODIPINE [Concomitant]
     Active Substance: AMLODIPINE BESYLATE
     Dates: start: 20170129
  15. LANSOPRAZOLE. [Concomitant]
     Active Substance: LANSOPRAZOLE
  16. LANSOPRAZOLE. [Suspect]
     Active Substance: LANSOPRAZOLE
     Indication: GASTRIC BYPASS
     Route: 065
     Dates: start: 20150120, end: 20160315
  17. ZEGERID [Suspect]
     Active Substance: OMEPRAZOLE\SODIUM BICARBONATE
     Indication: GASTROOESOPHAGEAL REFLUX DISEASE
     Route: 065
     Dates: start: 20140702, end: 20141223
  18. LISINOPRIL. [Concomitant]
     Active Substance: LISINOPRIL
     Dates: start: 20170507
  19. GABAPENTIN. [Concomitant]
     Active Substance: GABAPENTIN
  20. SUCRALFATE. [Concomitant]
     Active Substance: SUCRALFATE
  21. CEPHALEXIN. [Concomitant]
     Active Substance: CEPHALEXIN
  22. PAROXETINE. [Concomitant]
     Active Substance: PAROXETINE
     Dates: start: 20170307
  23. MELOXICAM. [Concomitant]
     Active Substance: MELOXICAM
  24. CYMBALTA [Concomitant]
     Active Substance: DULOXETINE HYDROCHLORIDE
  25. PRILOSEC [Suspect]
     Active Substance: OMEPRAZOLE MAGNESIUM
     Indication: GASTRIC BYPASS
     Route: 048
     Dates: start: 2007, end: 2016
  26. IBUPROFEN. [Concomitant]
     Active Substance: IBUPROFEN
     Dates: start: 20170129
  27. CLONAZEPAM. [Concomitant]
     Active Substance: CLONAZEPAM
  28. SEROQUEL [Concomitant]
     Active Substance: QUETIAPINE FUMARATE

REACTIONS (2)
  - Acute kidney injury [Unknown]
  - Chronic kidney disease [Not Recovered/Not Resolved]

NARRATIVE: CASE EVENT DATE: 201407
